FAERS Safety Report 8827554 (Version 1)
Quarter: 2012Q4

REPORT INFORMATION
  Report Type: 
  Country: ZA (occurrence: ZA)
  Receive Date: 20121005
  Receipt Date: 20121005
  Transmission Date: 20130627
  Serious: Yes (Hospitalization)
  Sender: FDA-Public Use
  Company Number: ZA-ELI_LILLY_AND_COMPANY-ZA201209008262

PATIENT
  Age: 76 Year
  Sex: Female

DRUGS (5)
  1. HUMALOG 25% LISPRO, 75% NPL [Suspect]
     Indication: DIABETES MELLITUS
     Dosage: 22 u, each morning
     Route: 058
  2. HUMALOG 25% LISPRO, 75% NPL [Suspect]
     Dosage: 20 u, each evening
     Route: 058
  3. SIMVASTATIN ARROW [Concomitant]
     Indication: BLOOD CHOLESTEROL
     Dosage: 1 DF, each evening
     Route: 048
  4. CO-IRBEWIN [Concomitant]
     Indication: HYPERTENSION
     Dosage: 1 DF, each evening
     Route: 048
  5. ECOTRIN [Concomitant]
     Indication: PLATELET AGGREGATION
     Dosage: 1 DF, each evening
     Route: 048

REACTIONS (2)
  - Fall [Recovering/Resolving]
  - Cervical vertebral fracture [Recovering/Resolving]
